FAERS Safety Report 4997086-2 (Version None)
Quarter: 2006Q2

REPORT INFORMATION
  Report Type: 
  Country: None (occurrence: None)
  Receive Date: 20060505
  Receipt Date: 20060424
  Transmission Date: 20061013
  Serious: Yes (Life-Threatening, Hospitalization)
  Sender: FDA-Public Use
  Company Number: 2006RL000144

PATIENT
  Age: 78 Year
  Sex: Male
  Weight: 58.9676 kg

DRUGS (6)
  1. RYTHMOL [Suspect]
     Indication: ATRIAL FIBRILLATION
     Dosage: 225 MG; Q12H; PO
     Route: 048
     Dates: start: 20060124
  2. ASPIRIN [Concomitant]
  3. WARFARIN SODIUM [Concomitant]
  4. SPIRIVA ^PFIZER^ [Concomitant]
  5. ADVAIR DISKUS 100/50 [Concomitant]
  6. LOTREL [Concomitant]

REACTIONS (3)
  - ANGINA UNSTABLE [None]
  - ARTERIOSCLEROSIS [None]
  - NECK PAIN [None]
